FAERS Safety Report 4929004-7 (Version None)
Quarter: 2006Q1

REPORT INFORMATION
  Report Type: 
  Country: None (occurrence: None)
  Receive Date: 20060130
  Receipt Date: 20051108
  Transmission Date: 20060701
  Serious: Yes (Death, Life-Threatening)
  Sender: FDA-Public Use
  Company Number: RB-2285-2005

PATIENT
  Age: 51 Year
  Sex: Male

DRUGS (6)
  1. SUBUTEX [Suspect]
     Indication: PAIN
     Dosage: 8 MG BID SL
     Route: 060
     Dates: start: 20050818, end: 20050821
  2. SUBUTEX [Suspect]
     Indication: PAIN
     Dosage: 12 MG QD SL
     Route: 060
     Dates: start: 20050822, end: 20050828
  3. SUBUTEX [Suspect]
     Indication: PAIN
     Dosage: 16 MG BID SL
     Route: 060
     Dates: start: 20050829, end: 20050928
  4. SUBUTEX [Suspect]
     Indication: PAIN
     Dosage: 8 MG BID SL
     Route: 060
     Dates: start: 20050929, end: 20051012
  5. SUBUTEX [Suspect]
     Indication: PAIN
     Dosage: 16 MG BID SL
     Route: 060
     Dates: start: 20051013, end: 20051021
  6. XANAX [Concomitant]

REACTIONS (1)
  - DEATH [None]
